FAERS Safety Report 9515544 (Version 1)
Quarter: 2013Q3

REPORT INFORMATION
  Report Type: Spontaneous
  Country: BR (occurrence: BR)
  Receive Date: 20130911
  Receipt Date: 20130911
  Transmission Date: 20140515
  Serious: Yes (Death, Other)
  Sender: FDA-Public Use
  Company Number: PHHY2013BR099718

PATIENT
  Age: 84 Year
  Sex: Female
  Weight: 60 kg

DRUGS (2)
  1. DIOVAN HCT [Suspect]
     Indication: HYPERTENSION
     Dosage: 1 DF, (VALS 320 MG/ HCT 25 MG) QD
     Route: 048
  2. HIDANTAL [Concomitant]
     Indication: CONVULSION
     Dosage: 2 DF, DAILY
     Route: 048
     Dates: start: 2003

REACTIONS (3)
  - Thrombosis [Fatal]
  - Respiratory failure [Fatal]
  - Renal impairment [Not Recovered/Not Resolved]
